FAERS Safety Report 22394541 (Version 1)
Quarter: 2023Q2

REPORT INFORMATION
  Report Type: Spontaneous
  Country: US (occurrence: US)
  Receive Date: 20230601
  Receipt Date: 20230601
  Transmission Date: 20230722
  Serious: Yes (Hospitalization)
  Sender: FDA-Public Use
  Company Number: US-BRISTOL-MYERS SQUIBB COMPANY-2023-076448

PATIENT
  Age: 77 Year
  Sex: Male
  Weight: 77.47 kg

DRUGS (20)
  1. REVLIMID [Suspect]
     Active Substance: LENALIDOMIDE
     Indication: Plasma cell myeloma
     Dosage: FREQUENCY: USED AS DIRECTED
     Route: 048
     Dates: start: 20221223, end: 20230112
  2. REVLIMID [Suspect]
     Active Substance: LENALIDOMIDE
     Dosage: FREQUENCY: USED AS DIRECTED (28 CT)
     Route: 048
     Dates: start: 20230112, end: 20230215
  3. REVLIMID [Suspect]
     Active Substance: LENALIDOMIDE
     Dosage: (28 CT)
     Route: 048
     Dates: start: 20230215, end: 20230317
  4. REVLIMID [Suspect]
     Active Substance: LENALIDOMIDE
     Dosage: FREQUENCY: USED AS DIRECTED (28 CT)
     Route: 048
     Dates: start: 20230317, end: 20230410
  5. REVLIMID [Suspect]
     Active Substance: LENALIDOMIDE
     Dosage: (28 CT)
     Route: 048
     Dates: start: 20230410, end: 20230505
  6. REVLIMID [Suspect]
     Active Substance: LENALIDOMIDE
     Dosage: FREQUENCY: USED AS DIRECTED (28 CT)
     Route: 048
     Dates: start: 20230505, end: 20230526
  7. REVLIMID [Suspect]
     Active Substance: LENALIDOMIDE
     Dosage: (28 CT)
     Route: 048
     Dates: start: 20230526, end: 20230526
  8. CYCLOPHOSPHAMIDE [Concomitant]
     Active Substance: CYCLOPHOSPHAMIDE
     Indication: Product used for unknown indication
     Route: 048
     Dates: start: 20221227, end: 20230526
  9. DEXAMETHASONE [Concomitant]
     Active Substance: DEXAMETHASONE
     Indication: Product used for unknown indication
     Route: 048
     Dates: start: 20221227, end: 20230526
  10. POTASSIUM CHLORIDE [Concomitant]
     Active Substance: POTASSIUM CHLORIDE
     Indication: Product used for unknown indication
     Dosage: ER ORAL TABLET E
     Route: 048
     Dates: start: 20221227, end: 20230526
  11. PROCHLORPERAZINE MALEATE [Concomitant]
     Active Substance: PROCHLORPERAZINE MALEATE
     Indication: Product used for unknown indication
     Route: 048
     Dates: start: 20221227, end: 20230526
  12. GEMTESA [Concomitant]
     Active Substance: VIBEGRON
     Indication: Product used for unknown indication
     Route: 048
     Dates: start: 20221227, end: 20230526
  13. EZETIMIBE [Concomitant]
     Active Substance: EZETIMIBE
     Indication: Product used for unknown indication
     Route: 048
     Dates: start: 20221227, end: 20230526
  14. TAMSULOSIN HYDROCHLORIDE [Concomitant]
     Active Substance: TAMSULOSIN HYDROCHLORIDE
     Indication: Product used for unknown indication
     Route: 048
     Dates: start: 20221227, end: 20230526
  15. CLOPIDOGREL BISULFATE [Concomitant]
     Active Substance: CLOPIDOGREL BISULFATE
     Indication: Product used for unknown indication
     Dosage: TABLET 7
     Route: 048
     Dates: start: 20221227, end: 20230526
  16. ACYCLOVIR [Concomitant]
     Active Substance: ACYCLOVIR
     Indication: Product used for unknown indication
     Route: 048
     Dates: start: 20221227, end: 20230526
  17. CARVEDILOL [Concomitant]
     Active Substance: CARVEDILOL
     Indication: Product used for unknown indication
     Route: 048
     Dates: start: 20221227, end: 20230526
  18. ONDANSETRON HYDROCHLORIDE [Concomitant]
     Active Substance: ONDANSETRON HYDROCHLORIDE
     Indication: Product used for unknown indication
     Dosage: FREQ: PRN
     Route: 048
     Dates: start: 20221227, end: 20230526
  19. IRBESARTAN [Concomitant]
     Active Substance: IRBESARTAN
     Indication: Product used for unknown indication
     Dosage: FREQ: PRN
     Route: 048
     Dates: start: 20221227, end: 20230526
  20. AMLODIPINE BESYLATE [Concomitant]
     Active Substance: AMLODIPINE BESYLATE
     Indication: Product used for unknown indication
     Dosage: FREQ: PRN
     Route: 048
     Dates: start: 20221227, end: 20230526

REACTIONS (2)
  - Diarrhoea [Recovering/Resolving]
  - Off label use [Unknown]

NARRATIVE: CASE EVENT DATE: 20230508
